FAERS Safety Report 4931139-X (Version None)
Quarter: 2006Q1

REPORT INFORMATION
  Report Type: 
  Country: None (occurrence: None)
  Receive Date: 20060302
  Receipt Date: 20050408
  Transmission Date: 20060701
  Serious: Yes (Hospitalization, Disabling)
  Sender: FDA-Public Use
  Company Number: US-MERCK-0504USA01295

PATIENT
  Age: 45 Year
  Sex: Male
  Weight: 68 kg

DRUGS (2)
  1. VIOXX [Suspect]
     Indication: PAIN
     Route: 048
     Dates: start: 20000101, end: 20010101
  2. VIOXX [Suspect]
     Indication: ARTHRITIS
     Route: 048
     Dates: start: 20000101, end: 20010101

REACTIONS (4)
  - AMNESIA [None]
  - ANGINA UNSTABLE [None]
  - ANXIETY [None]
  - CORONARY ARTERY DISEASE [None]
